FAERS Safety Report 5204087-8 (Version None)
Quarter: 2007Q1

REPORT INFORMATION
  Report Type: 
  Country: None (occurrence: None)
  Receive Date: 20070110
  Receipt Date: 20051115
  Transmission Date: 20070707
  Serious: No
  Sender: FDA-Public Use
  Company Number: US-BRISTOL-MYERS SQUIBB COMPANY-13181193

PATIENT
  Age: 57 Year
  Sex: Male

DRUGS (7)
  1. ABILIFY [Suspect]
     Route: 048
     Dates: start: 20050910, end: 20051029
  2. THIOTHIXENE HCL [Concomitant]
  3. HYDROCODONE BITARTRATE [Concomitant]
  4. DEPAKOTE ER [Concomitant]
  5. BENZTROPINE MESYLATE [Concomitant]
  6. DETROL [Concomitant]
  7. METAMUCIL [Concomitant]

REACTIONS (1)
  - HYPERTENSION [None]
